FAERS Safety Report 24212072 (Version 1)
Quarter: 2024Q3

REPORT INFORMATION
  Report Type: Spontaneous
  Country: ZA (occurrence: None)
  Receive Date: 20240815
  Receipt Date: 20240815
  Transmission Date: 20241016
  Serious: Yes (Other)
  Sender: ASTRAZENECA
  Company Number: 2024A180205

PATIENT
  Age: 23376 Day
  Sex: Female

DRUGS (8)
  1. BUDESONIDE\FORMOTEROL [Suspect]
     Active Substance: BUDESONIDE\FORMOTEROL
     Dosage: 160/4.5 MCG; UNKNOWN UNKNOWN
     Route: 055
  2. ERGOCALCIFEROL [Concomitant]
     Active Substance: ERGOCALCIFEROL
     Dosage: 50000 IU
  3. AZITHROMYCIN NF ASPEN [Concomitant]
     Dosage: 500 MG
  4. AZITHROMYCIN NF ASPEN [Concomitant]
     Dosage: 500 MG
  5. QUETIAPINE [Concomitant]
     Active Substance: QUETIAPINE
     Dosage: 100 MG
  6. QUETIAPINE [Concomitant]
     Active Substance: QUETIAPINE
     Dosage: 25 MG
  7. SERDEP [Concomitant]
     Dosage: 100 MG
  8. SERDEP [Concomitant]
     Dosage: 50 MG

REACTIONS (1)
  - Epilepsy [Unknown]
